FAERS Safety Report 24862190 (Version 1)
Quarter: 2025Q1

REPORT INFORMATION
  Report Type: Spontaneous
  Country: US (occurrence: US)
  Receive Date: 20250120
  Receipt Date: 20250120
  Transmission Date: 20250408
  Serious: Yes (Hospitalization, Other)
  Sender: HIKMA
  Company Number: US-HIKMA PHARMACEUTICALS USA INC.-US-H14001-25-00319

PATIENT

DRUGS (2)
  1. IODINATED I-131 SERUM ALBUMIN [Suspect]
     Active Substance: IODINATED I-131 SERUM ALBUMIN
     Indication: Hormone therapy
     Route: 065
  2. SODIUM CHLORIDE [Suspect]
     Active Substance: SODIUM CHLORIDE
     Indication: Irrigation therapy
     Route: 061

REACTIONS (2)
  - Eye pain [Recovering/Resolving]
  - Lacrimation increased [Recovering/Resolving]
